FAERS Safety Report 4946331-8 (Version None)
Quarter: 2006Q1

REPORT INFORMATION
  Report Type: 
  Country: None (occurrence: None)
  Receive Date: 20060316
  Receipt Date: 20060316
  Transmission Date: 20060701
  Serious: Yes (Disabling, Other)
  Sender: FDA-Public Use
  Company Number: None

PATIENT
  Age: 44 Year
  Sex: Female

DRUGS (1)
  1. AVANDIA [Suspect]
     Indication: DIABETES MELLITUS
     Dosage: ONE TABLET TWICE DAILY PO
     Route: 048

REACTIONS (5)
  - EYE DISORDER [None]
  - FLUID RETENTION [None]
  - MACULAR OEDEMA [None]
  - OEDEMA PERIPHERAL [None]
  - WEIGHT DECREASED [None]
